FAERS Safety Report 4453890-0 (Version None)
Quarter: 2004Q3

REPORT INFORMATION
  Report Type: 
  Country: None (occurrence: None)
  Receive Date: 20040902
  Receipt Date: 20040624
  Transmission Date: 20050211
  Serious: No
  Sender: FDA-Public Use
  Company Number: 200418577BWH

PATIENT
  Age: 42 Year
  Sex: Male
  Weight: 99.7913 kg

DRUGS (1)
  1. LEVITRA [Suspect]
     Indication: ERECTILE DYSFUNCTION
     Dosage: QD, ORAL
     Route: 048
     Dates: start: 20040609, end: 20040623

REACTIONS (2)
  - EJACULATION DISORDER [None]
  - ERECTION INCREASED [None]
